FAERS Safety Report 4651673-X (Version None)
Quarter: 2005Q2

REPORT INFORMATION
  Report Type: 
  Country: None (occurrence: None)
  Receive Date: 20050404
  Receipt Date: 20041029
  Transmission Date: 20051028
  Serious: No
  Sender: FDA-Public Use
  Company Number: USA041182788

PATIENT
  Sex: Male

DRUGS (4)
  1. CYMBALTA [Suspect]
     Dosage: 15 MG DAY
     Dates: start: 20041016
  2. METFORMIN [Concomitant]
  3. GLYBURIDE [Concomitant]
  4. ACTOS [Concomitant]

REACTIONS (1)
  - BLOOD GLUCOSE INCREASED [None]
